FAERS Safety Report 18447951 (Version 1)
Quarter: 2020Q4

REPORT INFORMATION
  Report Type: Report from Study
  Country: US (occurrence: US)
  Receive Date: 20201101
  Receipt Date: 20201101
  Transmission Date: 20210114
  Serious: No
  Sender: FDA-Public Use
  Company Number: NVSC2020US289959

PATIENT
  Sex: Female

DRUGS (1)
  1. GILENYA [Suspect]
     Active Substance: FINGOLIMOD HYDROCHLORIDE
     Indication: MULTIPLE SCLEROSIS
     Dosage: 105 MG, QD
     Route: 048
     Dates: start: 20201023, end: 20201023

REACTIONS (3)
  - Chest discomfort [Unknown]
  - Dizziness [Unknown]
  - Muscular weakness [Unknown]
